FAERS Safety Report 4901832-3 (Version None)
Quarter: 2006Q1

REPORT INFORMATION
  Report Type: 
  Country: None (occurrence: None)
  Receive Date: 20060203
  Receipt Date: 20060203
  Transmission Date: 20060701
  Serious: Yes (Death)
  Sender: FDA-Public Use
  Company Number: None

PATIENT
  Age: 71 Year
  Sex: Male

DRUGS (11)
  1. THALIDOMIDE [Suspect]
     Indication: MULTIPLE MYELOMA
     Dosage: 50MG  QHS PO
     Route: 048
     Dates: start: 20051129, end: 20060105
  2. MELPHALAN [Concomitant]
  3. VELCADE [Concomitant]
  4. ASPIRIN [Concomitant]
  5. PLAVIX [Concomitant]
  6. THALIDOMIDE [Concomitant]
  7. MEDROL [Concomitant]
  8. BIAXIN [Concomitant]
  9. THALIDOMIDE [Concomitant]
  10. MEDROL [Concomitant]
  11. BIAXIN [Concomitant]

REACTIONS (2)
  - FALL [None]
  - MYOPATHY STEROID [None]
